FAERS Safety Report 6187806-6 (Version None)
Quarter: 2009Q2

REPORT INFORMATION
  Report Type: 
  Country: None (occurrence: None)
  Receive Date: 20090513
  Receipt Date: 20090505
  Transmission Date: 20091009
  Serious: Yes (Hospitalization)
  Sender: FDA-Public Use
  Company Number: US-ELI_LILLY_AND_COMPANY-US200905000896

PATIENT
  Sex: Male

DRUGS (3)
  1. HUMULIN 70/30 [Suspect]
     Indication: TYPE 2 DIABETES MELLITUS
     Dosage: 30 U, EACH MORNING
     Dates: start: 19940101, end: 20090101
  2. HUMULIN 70/30 [Suspect]
     Dosage: 35 U, UNK
     Dates: end: 20090101
  3. LANTUS [Concomitant]
     Dosage: 50 U, EACH EVENING

REACTIONS (4)
  - BACK DISORDER [None]
  - BLOOD GLUCOSE INCREASED [None]
  - FALL [None]
  - INTERVERTEBRAL DISC PROTRUSION [None]
